FAERS Safety Report 14669630 (Version 5)
Quarter: 2018Q2

REPORT INFORMATION
  Report Type: Report from Study
  Country: CA (occurrence: CA)
  Receive Date: 20180322
  Receipt Date: 20180515
  Transmission Date: 20180711
  Serious: Yes (Other)
  Sender: FDA-Public Use
  Company Number: CA-GLAXOSMITHKLINE-CA2018GSK045728

PATIENT
  Age: 70 Year
  Sex: Female

DRUGS (4)
  1. MEPOLIZUMAB [Suspect]
     Active Substance: MEPOLIZUMAB
     Dosage: 100 MG, Z(MONTHLY)
     Route: 042
  2. ZENHALE [Concomitant]
     Active Substance: FORMOTEROL FUMARATE\MOMETASONE FUROATE
     Indication: PRODUCT USED FOR UNKNOWN INDICATION
     Dosage: UNK UNK, QD(PRN)
  3. MEPOLIZUMAB [Suspect]
     Active Substance: MEPOLIZUMAB
     Dosage: 100 MG, Z(MONTHLY)
     Route: 042
  4. MEPOLIZUMAB [Suspect]
     Active Substance: MEPOLIZUMAB
     Indication: ASTHMA
     Dosage: 100 MG, Z(MONTHLY)
     Route: 042

REACTIONS (11)
  - Lower respiratory tract infection [Recovered/Resolved]
  - Productive cough [Unknown]
  - Condition aggravated [Unknown]
  - Influenza [Unknown]
  - Sputum discoloured [Unknown]
  - Wheezing [Unknown]
  - Headache [Recovered/Resolved]
  - Lung infection [Recovered/Resolved]
  - Cataract [Unknown]
  - Visual impairment [Unknown]
  - Vision blurred [Unknown]

NARRATIVE: CASE EVENT DATE: 20180410
